FAERS Safety Report 15394399 (Version 1)
Quarter: 2018Q3

REPORT INFORMATION
  Report Type: Report from Study
  Country: GB (occurrence: GB)
  Receive Date: 20180918
  Receipt Date: 20180918
  Transmission Date: 20181010
  Serious: Yes (Hospitalization)
  Sender: FDA-Public Use
  Company Number: GB-ROCHE-2183681

PATIENT
  Age: 68 Year
  Sex: Male
  Weight: 72 kg

DRUGS (1)
  1. RITUXIMAB. [Suspect]
     Active Substance: RITUXIMAB
     Indication: RHEUMATOID ARTHRITIS
     Route: 042
     Dates: end: 20180130

REACTIONS (19)
  - Dry gangrene [Unknown]
  - Arthralgia [Recovered/Resolved with Sequelae]
  - Fungal infection [Unknown]
  - Influenza virus test positive [Unknown]
  - Sepsis [Recovered/Resolved with Sequelae]
  - Lower respiratory tract infection [Unknown]
  - Atrial fibrillation [Unknown]
  - Sepsis [Unknown]
  - Vascular insufficiency [Unknown]
  - Human rhinovirus test positive [Unknown]
  - Atrial fibrillation [Unknown]
  - Hypotension [Unknown]
  - Gangrene [Recovered/Resolved with Sequelae]
  - Rash pruritic [Unknown]
  - Lymphopenia [Unknown]
  - Viral infection [Unknown]
  - Fall [Unknown]
  - Phantom pain [Unknown]
  - Gangrene [Unknown]

NARRATIVE: CASE EVENT DATE: 20180311
